FAERS Safety Report 5648841-7 (Version None)
Quarter: 2008Q1

REPORT INFORMATION
  Report Type: 
  Country: None (occurrence: None)
  Receive Date: 20080304
  Receipt Date: 20080225
  Transmission Date: 20080703
  Serious: Yes (Other)
  Sender: FDA-Public Use
  Company Number: AE-ASTRAZENECA-2008SE01041

PATIENT
  Sex: Female

DRUGS (1)
  1. MEROPENEM [Suspect]

REACTIONS (1)
  - PANCYTOPENIA [None]
